FAERS Safety Report 25114074 (Version 1)
Quarter: 2025Q1

REPORT INFORMATION
  Report Type: Spontaneous
  Country: PT (occurrence: PT)
  Receive Date: 20250324
  Receipt Date: 20250324
  Transmission Date: 20250409
  Serious: Yes (Life-Threatening, Hospitalization, Other)
  Sender: SANDOZ
  Company Number: PT-BAXTER-2024BAX023584

PATIENT
  Age: 68 Year
  Sex: Male
  Weight: 90 kg

DRUGS (19)
  1. DIPRIVAN [Suspect]
     Active Substance: PROPOFOL
     Indication: General anaesthesia
     Route: 042
  2. DIPRIVAN [Suspect]
     Active Substance: PROPOFOL
     Indication: Induction of anaesthesia
  3. ANAPEINE [Suspect]
     Active Substance: ROPIVACAINE HYDROCHLORIDE
     Indication: Local anaesthesia
     Route: 065
  4. EPHEDRINE [Suspect]
     Active Substance: EPHEDRINE
     Indication: Hypotension
     Route: 065
  5. EPHEDRINE [Suspect]
     Active Substance: EPHEDRINE
     Route: 065
  6. FENTANYL [Suspect]
     Active Substance: FENTANYL
     Indication: General anaesthesia
     Route: 042
  7. SUGAMMADEX SODIUM [Suspect]
     Active Substance: SUGAMMADEX SODIUM
     Indication: Neuromuscular blockade reversal
     Route: 065
  8. SEVOFLURANE [Suspect]
     Active Substance: SEVOFLURANE
     Indication: General anaesthesia
     Route: 065
  9. TELMISARTAN [Suspect]
     Active Substance: TELMISARTAN
     Indication: Hypertension
     Route: 065
  10. CEFAZOLIN [Concomitant]
     Active Substance: CEFAZOLIN
     Indication: General anaesthesia
     Route: 065
  11. EPHEDRINE [Concomitant]
     Active Substance: EPHEDRINE
     Indication: Hypotension
     Route: 065
  12. EPHEDRINE [Concomitant]
     Active Substance: EPHEDRINE
     Indication: Bradycardia
     Route: 065
  13. EPHEDRINE [Concomitant]
     Active Substance: EPHEDRINE
     Route: 065
  14. KETOROLAC [Concomitant]
     Active Substance: KETOROLAC TROMETHAMINE
     Indication: Analgesic therapy
     Route: 065
  15. ACETAMINOPHEN [Concomitant]
     Active Substance: ACETAMINOPHEN
     Indication: Analgesic therapy
     Route: 065
  16. ROCURONIUM BROMIDE [Concomitant]
     Active Substance: ROCURONIUM BROMIDE
     Indication: Hypotonia
     Route: 042
  17. ROCURONIUM BROMIDE [Concomitant]
     Active Substance: ROCURONIUM BROMIDE
     Indication: General anaesthesia
  18. ROCURONIUM BROMIDE [Concomitant]
     Active Substance: ROCURONIUM BROMIDE
     Indication: Induction of anaesthesia
  19. ROCURONIUM BROMIDE [Concomitant]
     Active Substance: ROCURONIUM BROMIDE
     Indication: Neuromuscular blocking therapy

REACTIONS (4)
  - Cardiac arrest [Recovered/Resolved]
  - Hypotension [Recovered/Resolved]
  - Sinus bradycardia [Recovered/Resolved]
  - Drug ineffective [Unknown]
